FAERS Safety Report 24400649 (Version 3)
Quarter: 2025Q4

REPORT INFORMATION
  Report Type: Report from Study
  Country: JP (occurrence: JP)
  Receive Date: 20241006
  Receipt Date: 20251208
  Transmission Date: 20260118
  Serious: Yes (Death, Hospitalization, Other)
  Sender: ALEXION PHARMACEUTICALS
  Company Number: JP-ASTRAZENECA-202410JPN000033JP

PATIENT
  Age: 80 Year
  Sex: Female
  Weight: 79 kg

DRUGS (5)
  1. ULTOMIRIS [Suspect]
     Active Substance: RAVULIZUMAB-CWVZ
     Indication: Neuromyelitis optica spectrum disorder
     Dosage: UNK
     Route: 065
  2. CARBOCYSTEINE [Concomitant]
     Active Substance: CARBOCYSTEINE
     Indication: Neuromyelitis optica spectrum disorder
     Dosage: 250 MILLIGRAM, TID
     Dates: end: 20241127
  3. SENNOSIDES [Concomitant]
     Active Substance: SENNOSIDES
     Indication: Neuromyelitis optica spectrum disorder
     Dosage: 12 MILLIGRAM, QD
     Dates: end: 20241127
  4. EDOXABAN TOSYLATE [Concomitant]
     Active Substance: EDOXABAN TOSYLATE
     Indication: Lymphoedema
     Dosage: 30 MILLIGRAM, QD
     Dates: end: 20241127
  5. MAGNESIUM OXIDE [Concomitant]
     Active Substance: MAGNESIUM OXIDE
     Indication: Neuromyelitis optica spectrum disorder
     Dosage: 250 MILLIGRAM, TID
     Dates: end: 20241127

REACTIONS (21)
  - Tuberculosis [Unknown]
  - Mycobacterium tuberculosis complex test positive [Unknown]
  - Haematological infection [Fatal]
  - Device related infection [Fatal]
  - Multiple organ dysfunction syndrome [Fatal]
  - Necrotising fasciitis [Unknown]
  - Deep vein thrombosis [Unknown]
  - Pseudomonas infection [Unknown]
  - Bacteraemia [Unknown]
  - Adrenal insufficiency [Unknown]
  - Cellulitis [Unknown]
  - Urinary tract infection [Unknown]
  - Drug eruption [Unknown]
  - Blood blister [Unknown]
  - Skin laceration [Unknown]
  - Skin infection [Unknown]
  - Hypoalbuminaemia [Unknown]
  - Liver disorder [Unknown]
  - Puncture site inflammation [Unknown]
  - Candida infection [Unknown]
  - Staphylococcal infection [Unknown]

NARRATIVE: CASE EVENT DATE: 20241007
